FAERS Safety Report 25496733 (Version 2)
Quarter: 2025Q4

REPORT INFORMATION
  Report Type: Spontaneous
  Country: EU (occurrence: EU)
  Receive Date: 20250701
  Receipt Date: 20251002
  Transmission Date: 20260118
  Serious: Yes (Hospitalization, Other)
  Sender: BRISTOL-MYERS SQUIBB COMPANY
  Company Number: EU-ROCHE-10000311525

PATIENT
  Age: 46 Year
  Sex: Female
  Weight: 64 kg

DRUGS (6)
  1. PACLITAXEL [Suspect]
     Active Substance: PACLITAXEL
     Indication: Triple negative breast cancer
     Dosage: ON DAYS 1, 8, AND 15, EVERY 3 WEEKS?ON 27-DEC-2024, SHE RECEIVED THE MOST RECENT DOSE OF NAB-PACLITAXEL (181 MG)
     Dates: start: 20241025, end: 20241227
  2. CARBOPLATIN [Suspect]
     Active Substance: CARBOPLATIN
     Indication: Triple negative breast cancer
     Dosage: ON DAYS 1 EVERY 3 WEEKS.?ON 27-DEC-2024, SHE RECEIVED THE MOST RECENT DOSE OF CARBOPLATINE (587 MG)
     Dates: start: 20241025, end: 20241227
  3. ATEZOLIZUMAB [Suspect]
     Active Substance: ATEZOLIZUMAB
     Indication: Triple negative breast cancer
     Dosage: LAST DOSE ON 16-MAY-2025
     Dates: start: 20241025, end: 20250516
  4. TIRAGOLUMAB [Suspect]
     Active Substance: TIRAGOLUMAB
     Indication: Triple negative breast cancer
     Dosage: LAST DOSE ON 16-MAY-2025
     Dates: start: 20241025, end: 20250516
  5. DOXORUBICIN [Suspect]
     Active Substance: DOXORUBICIN
     Indication: Triple negative breast cancer
     Dosage: LAST DOSE (110 MG) ON 28/MAR/2025
     Dates: start: 20250124, end: 20250328
  6. CYCLOPHOSPHAMIDE [Suspect]
     Active Substance: CYCLOPHOSPHAMIDE
     Indication: Triple negative breast cancer
     Dosage: LAST DOSE (1098 MG) ON 28-MAR-2025
     Dates: start: 20250124, end: 20250328

REACTIONS (1)
  - Myocarditis [Recovered/Resolved]

NARRATIVE: CASE EVENT DATE: 20250606
